FAERS Safety Report 7009769-3 (Version None)
Quarter: 2010Q3

REPORT INFORMATION
  Report Type: 
  Country: None (occurrence: None)
  Receive Date: 20100923
  Receipt Date: 20100915
  Transmission Date: 20110219
  Serious: Yes (Other)
  Sender: FDA-Public Use
  Company Number: US-ABBOTT-10P-163-0671333-00

PATIENT
  Sex: Female
  Weight: 74.91 kg

DRUGS (3)
  1. HUMIRA [Suspect]
     Indication: RHEUMATOID ARTHRITIS
     Route: 058
     Dates: start: 20040101, end: 20050101
  2. HUMIRA [Suspect]
     Route: 058
     Dates: start: 20100601, end: 20100601
  3. HUMIRA [Suspect]
     Route: 058
     Dates: start: 20100701, end: 20100801

REACTIONS (6)
  - FATIGUE [None]
  - OROPHARYNGEAL PAIN [None]
  - PAIN [None]
  - RASH [None]
  - SINUS CONGESTION [None]
  - TOOTH FRACTURE [None]
